FAERS Safety Report 24829307 (Version 2)
Quarter: 2025Q1

REPORT INFORMATION
  Report Type: Report from Study
  Country: US (occurrence: US)
  Receive Date: 20250110
  Receipt Date: 20250113
  Transmission Date: 20250408
  Serious: Yes (Hospitalization)
  Sender: ROCHE
  Company Number: US-ROCHE-10000038507

PATIENT
  Age: 56 Year
  Sex: Female
  Weight: 69.4 kg

DRUGS (1)
  1. OCREVUS [Suspect]
     Active Substance: OCRELIZUMAB
     Indication: Relapsing-remitting multiple sclerosis
     Dosage: DATE OF TREATMENT: 25/JUL/2024.
     Route: 042
     Dates: start: 201810

REACTIONS (6)
  - Pneumonia [Recovering/Resolving]
  - JC polyomavirus test positive [Unknown]
  - Cough [Recovered/Resolved]
  - Pyrexia [Recovered/Resolved]
  - Multiple sclerosis [Not Recovered/Not Resolved]
  - Lymphadenopathy [Recovered/Resolved]

NARRATIVE: CASE EVENT DATE: 20200826
